FAERS Safety Report 8902752 (Version 1)
Quarter: 2012Q4

REPORT INFORMATION
  Report Type: 
  Country: US (occurrence: US)
  Receive Date: 20121112
  Receipt Date: 20121112
  Transmission Date: 20130627
  Serious: No
  Sender: FDA-Public Use
  Company Number: US-PFIZER INC-2012278507

PATIENT
  Age: 69 Year
  Sex: Male

DRUGS (2)
  1. ATARAX [Suspect]
     Indication: ITCHING
     Dosage: UNK
  2. HYDROXYZINE PAMOATE [Suspect]
     Indication: ITCHING
     Dosage: 25 mg, UNK

REACTIONS (1)
  - Fatigue [Unknown]
